FAERS Safety Report 6258888-8 (Version None)
Quarter: 2009Q3

REPORT INFORMATION
  Report Type: 
  Country: None (occurrence: None)
  Receive Date: 20090707
  Receipt Date: 20090702
  Transmission Date: 20100115
  Serious: Yes (Other)
  Sender: FDA-Public Use
  Company Number: JP-AVENTIS-200910939JP

PATIENT
  Age: 77 Year
  Sex: Male
  Weight: 62.7 kg

DRUGS (4)
  1. ENOXAPARIN SODIUM [Suspect]
     Route: 058
     Dates: start: 20090325, end: 20090331
  2. ENOXAPARIN SODIUM [Suspect]
     Route: 058
     Dates: start: 20090325, end: 20090331
  3. TOWARAT [Concomitant]
     Indication: HYPERTENSION
     Route: 048
  4. MAIBASTAN [Concomitant]
     Route: 048

REACTIONS (2)
  - LIVER DISORDER [None]
  - LIVER INJURY [None]
